FAERS Safety Report 7495572-7 (Version None)
Quarter: 2011Q2

REPORT INFORMATION
  Report Type: 
  Country: None (occurrence: None)
  Receive Date: 20110523
  Receipt Date: 20110511
  Transmission Date: 20111010
  Serious: Yes (Other)
  Sender: FDA-Public Use
  Company Number: US-JNJFOC-20110505451

PATIENT
  Sex: Male

DRUGS (1)
  1. INVEGA [Suspect]
     Indication: PRODUCT USED FOR UNKNOWN INDICATION
     Route: 048

REACTIONS (1)
  - BLOOD GLUCOSE INCREASED [None]
